FAERS Safety Report 9001844 (Version 1)
Quarter: 2013Q1

REPORT INFORMATION
  Report Type: Spontaneous
  Country: JP (occurrence: JP)
  Receive Date: 20130107
  Receipt Date: 20130107
  Transmission Date: 20140127
  Serious: Yes (Other)
  Sender: FDA-Public Use
  Company Number: JP-ASTRAZENECA-2012SE70900

PATIENT
  Age: 55 Year
  Sex: Female

DRUGS (3)
  1. BLOPRESS [Suspect]
     Indication: HYPERTENSION
     Route: 048
     Dates: start: 20120604, end: 20120904
  2. PLETAAL [Concomitant]
     Route: 048
  3. LENDORMIN [Concomitant]
     Route: 048

REACTIONS (1)
  - Rhabdomyolysis [Not Recovered/Not Resolved]
